FAERS Safety Report 6237099-6 (Version None)
Quarter: 2009Q2

REPORT INFORMATION
  Report Type: 
  Country: None (occurrence: None)
  Receive Date: 20090619
  Receipt Date: 20090408
  Transmission Date: 20091009
  Serious: No
  Sender: FDA-Public Use
  Company Number: US-ASTRAZENECA-2009UW08800

PATIENT
  Age: 62 Year
  Sex: Female

DRUGS (2)
  1. SYMBICORT [Suspect]
     Indication: PNEUMONIA
     Dosage: 640 UG
     Route: 055
     Dates: start: 20090101
  2. NEXIUM [Concomitant]

REACTIONS (5)
  - BACK PAIN [None]
  - ERUCTATION [None]
  - MUSCULOSKELETAL CHEST PAIN [None]
  - MYALGIA [None]
  - THROAT IRRITATION [None]
